FAERS Safety Report 22818004 (Version 2)
Quarter: 2024Q2

REPORT INFORMATION
  Report Type: Report from Study
  Country: US (occurrence: US)
  Receive Date: 20230814
  Receipt Date: 20240422
  Transmission Date: 20240715
  Serious: Yes (Hospitalization, Other)
  Sender: FDA-Public Use
  Company Number: US-ABBVIE-5363835

PATIENT
  Sex: Female

DRUGS (1)
  1. SKYRIZI [Suspect]
     Active Substance: RISANKIZUMAB-RZAA
     Indication: Psoriasis
     Route: 058
     Dates: start: 20230120

REACTIONS (6)
  - Spinal stenosis [Unknown]
  - Psoriasis [Unknown]
  - Diarrhoea [Unknown]
  - Hypoaesthesia [Unknown]
  - Spinal cord compression [Unknown]
  - Neck surgery [Unknown]

NARRATIVE: CASE EVENT DATE: 20230101
